FAERS Safety Report 15560873 (Version 3)
Quarter: 2019Q1

REPORT INFORMATION
  Report Type: Spontaneous
  Country: US (occurrence: US)
  Receive Date: 20181029
  Receipt Date: 20190328
  Transmission Date: 20190417
  Serious: Yes (Hospitalization)
  Sender: FDA-Public Use
  Company Number: US-PFIZER INC-2018433032

PATIENT
  Age: 74 Year
  Sex: Female
  Weight: 68.95 kg

DRUGS (4)
  1. IBRANCE [Suspect]
     Active Substance: PALBOCICLIB
     Indication: BREAST CANCER
     Dosage: UNK, UNK (EVERY 3 DAYS)
     Route: 048
     Dates: start: 2018
  2. IBRANCE [Suspect]
     Active Substance: PALBOCICLIB
     Dosage: UNK, UNK (EVERY 2 DAYS)
     Route: 048
     Dates: end: 201812
  3. LETROZOLE. [Concomitant]
     Active Substance: LETROZOLE
     Dosage: UNK
  4. IBRANCE [Suspect]
     Active Substance: PALBOCICLIB
     Dosage: 1 DF, UNK (AS DIRECTED BY DOCTOR/EVERY 3 DAYS)
     Route: 048
     Dates: end: 20190201

REACTIONS (9)
  - Full blood count decreased [Unknown]
  - Headache [Recovered/Resolved]
  - Erythema [Unknown]
  - Sensitivity to weather change [Unknown]
  - Pruritus [Unknown]
  - White blood cell count decreased [Unknown]
  - Skin disorder [Unknown]
  - Cough [Unknown]
  - Product packaging confusion [Unknown]
